FAERS Safety Report 8734312 (Version 2)
Quarter: 2012Q4

REPORT INFORMATION
  Report Type: 
  Country: US (occurrence: US)
  Receive Date: 20120821
  Receipt Date: 20120828
  Transmission Date: 20130627
  Serious: Yes (Hospitalization)
  Sender: FDA-Public Use
  Company Number: US-BAYER-2012-084955

PATIENT
  Age: 48 Year
  Sex: Female
  Weight: 73.47 kg

DRUGS (7)
  1. YASMIN [Suspect]
     Dosage: UNK
     Dates: start: 200212, end: 200601
  2. MORPHINE [Concomitant]
     Dosage: UNK
  3. LIPITOR [Concomitant]
     Dosage: UNK
  4. IBUPROFEN [Concomitant]
     Dosage: UNK
     Route: 048
     Dates: start: 20060128
  5. MULTIVITAMINS [Concomitant]
     Dosage: UNK
     Route: 048
     Dates: start: 20060129
  6. VITAMIN C [Concomitant]
     Dosage: UNK
     Route: 048
     Dates: start: 20060129
  7. NITROGLYCERIN [Concomitant]
     Dosage: UNK
     Route: 060

REACTIONS (15)
  - Myocardial infarction [None]
  - Cardiac disorder [None]
  - Musculoskeletal pain [None]
  - Chest pain [None]
  - Chest discomfort [None]
  - Dyspnoea [None]
  - Hyperhidrosis [None]
  - Nausea [None]
  - Chest pain [None]
  - Chest pain [None]
  - Pain [None]
  - Injury [None]
  - General physical health deterioration [None]
  - Anxiety [None]
  - Emotional distress [None]
